FAERS Safety Report 13337471 (Version 1)
Quarter: 2017Q1

REPORT INFORMATION
  Report Type: Report from Study
  Country: BR (occurrence: BR)
  Receive Date: 20170315
  Receipt Date: 20170315
  Transmission Date: 20170428
  Serious: Yes (Life-Threatening)
  Sender: FDA-Public Use
  Company Number: PHHY2017BR038658

PATIENT
  Sex: Female
  Weight: 65 kg

DRUGS (1)
  1. EXJADE [Suspect]
     Active Substance: DEFERASIROX
     Indication: SICKLE CELL ANAEMIA
     Dosage: 2 DF, UNK (1000 MG)
     Route: 065

REACTIONS (6)
  - Malaise [Unknown]
  - Nasopharyngitis [Unknown]
  - Feeling hot [Unknown]
  - Feeling abnormal [Unknown]
  - Memory impairment [Unknown]
  - Pain [Unknown]
